FAERS Safety Report 10042365 (Version 1)
Quarter: 2014Q1

REPORT INFORMATION
  Report Type: Spontaneous
  Country: BR (occurrence: BR)
  Receive Date: 20140327
  Receipt Date: 20140327
  Transmission Date: 20141002
  Serious: Yes (Other)
  Sender: FDA-Public Use
  Company Number: BR-PFIZER INC-2014082853

PATIENT
  Sex: Female

DRUGS (1)
  1. DALACIN C [Suspect]
     Indication: GASTRIC INFECTION
     Dosage: 300 MG, UNK
     Dates: start: 20140320

REACTIONS (4)
  - Asthmatic crisis [Unknown]
  - Pain [Not Recovered/Not Resolved]
  - Arthralgia [Not Recovered/Not Resolved]
  - Musculoskeletal chest pain [Not Recovered/Not Resolved]
